FAERS Safety Report 6279365-4 (Version None)
Quarter: 2009Q3

REPORT INFORMATION
  Report Type: 
  Country: None (occurrence: None)
  Receive Date: 20090721
  Receipt Date: 20090709
  Transmission Date: 20100115
  Serious: Yes (Other)
  Sender: FDA-Public Use
  Company Number: 237647K09USA

PATIENT
  Age: 52 Year
  Sex: Female

DRUGS (1)
  1. REBIF [Suspect]
     Indication: MULTIPLE SCLEROSIS
     Dates: start: 20080904, end: 20090401

REACTIONS (4)
  - ANAL FISTULA [None]
  - DISEASE PROGRESSION [None]
  - DISEASE RECURRENCE [None]
  - MULTIPLE SCLEROSIS [None]
